FAERS Safety Report 5014774-2 (Version None)
Quarter: 2006Q2

REPORT INFORMATION
  Report Type: 
  Country: None (occurrence: None)
  Receive Date: 20060531
  Receipt Date: 20060516
  Transmission Date: 20061013
  Serious: Yes (Hospitalization, Disabling, Other)
  Sender: FDA-Public Use
  Company Number: DE-AVENTIS-200611453DE

PATIENT
  Age: 67 Year
  Sex: Female
  Weight: 71 kg

DRUGS (5)
  1. AMARYL [Suspect]
     Indication: DIABETES MELLITUS
     Route: 048
     Dates: start: 20020101, end: 20060101
  2. AMARYL [Suspect]
     Dosage: DOSE: 2X4
     Route: 048
     Dates: start: 20060101
  3. ENALAPRIL [Concomitant]
     Dosage: DOSE UNIT: PER MILLE
     Route: 048
  4. ASPIRIN [Concomitant]
     Route: 048
  5. SORTIS [Concomitant]
     Route: 048

REACTIONS (11)
  - APHASIA [None]
  - CEREBROVASCULAR ACCIDENT [None]
  - CONFUSIONAL STATE [None]
  - DEPRESSION [None]
  - HYPOGLYCAEMIA [None]
  - HYPOGLYCAEMIC COMA [None]
  - MOTOR DYSFUNCTION [None]
  - NERVOUS SYSTEM DISORDER [None]
  - NEUROLOGICAL SYMPTOM [None]
  - OVERDOSE [None]
  - SPEECH DISORDER [None]
